FAERS Safety Report 15006690 (Version 2)
Quarter: 2018Q2

REPORT INFORMATION
  Report Type: Report from Study
  Country: US (occurrence: US)
  Receive Date: 20180613
  Receipt Date: 20180614
  Transmission Date: 20180711
  Serious: No
  Sender: FDA-Public Use
  Company Number: US-US WORLDMEDS, LLC-USW201711-001643

PATIENT
  Age: 70 Year
  Sex: Male

DRUGS (13)
  1. METAXALONE. [Concomitant]
     Active Substance: METAXALONE
  2. PRADAXA [Concomitant]
     Active Substance: DABIGATRAN ETEXILATE MESYLATE
  3. APOKYN [Suspect]
     Active Substance: APOMORPHINE HYDROCHLORIDE
     Indication: PARKINSON^S DISEASE
     Route: 058
     Dates: start: 20170516
  4. RANEXA [Concomitant]
     Active Substance: RANOLAZINE
  5. RESTASIS [Concomitant]
     Active Substance: CYCLOSPORINE
  6. COREG [Concomitant]
     Active Substance: CARVEDILOL
  7. MIRALAX [Concomitant]
     Active Substance: POLYETHYLENE GLYCOL 3350
  8. XANAX [Concomitant]
     Active Substance: ALPRAZOLAM
  9. PANTOPRAZOLE [Concomitant]
     Active Substance: PANTOPRAZOLE
  10. LASIX [Concomitant]
     Active Substance: FUROSEMIDE
  11. SINEMET [Concomitant]
     Active Substance: CARBIDOPA\LEVODOPA
  12. ZOCOR [Concomitant]
     Active Substance: SIMVASTATIN
  13. ZOLOFT [Concomitant]
     Active Substance: SERTRALINE HYDROCHLORIDE

REACTIONS (1)
  - Gait disturbance [Recovered/Resolved]

NARRATIVE: CASE EVENT DATE: 201711
